FAERS Safety Report 13563722 (Version 1)
Quarter: 2017Q2

REPORT INFORMATION
  Report Type: Spontaneous
  Country: US (occurrence: US)
  Receive Date: 20170519
  Receipt Date: 20170519
  Transmission Date: 20170830
  Serious: Yes (Hospitalization)
  Sender: FDA-Public Use
  Company Number: None

PATIENT
  Age: 53 Year
  Sex: Male
  Weight: 48 kg

DRUGS (1)
  1. CISPLATIN. [Suspect]
     Active Substance: CISPLATIN
     Dates: end: 20170501

REACTIONS (18)
  - Cachexia [None]
  - Blood glucose increased [None]
  - Body temperature increased [None]
  - Cough [None]
  - Malaise [None]
  - Hypotension [None]
  - Dizziness [None]
  - Choking [None]
  - Painful respiration [None]
  - Breath sounds abnormal [None]
  - Pyrexia [None]
  - Oxygen saturation decreased [None]
  - Fatigue [None]
  - Chest X-ray abnormal [None]
  - Heart rate increased [None]
  - Dyspnoea [None]
  - Bone marrow failure [None]
  - Blood creatinine abnormal [None]

NARRATIVE: CASE EVENT DATE: 20170515
